FAERS Safety Report 7335497-0 (Version None)
Quarter: 2011Q1

REPORT INFORMATION
  Report Type: 
  Country: None (occurrence: None)
  Receive Date: 20110301
  Receipt Date: 20110301
  Transmission Date: 20110831
  Serious: Yes (Death, Life-Threatening, Hospitalization, Disabling, Other)
  Sender: FDA-Public Use
  Company Number: None

PATIENT
  Age: 95 Year
  Sex: Female
  Weight: 59.1 kg

DRUGS (1)
  1. SMZ/TMP DS 800-160 [Suspect]
     Indication: URINARY TRACT INFECTION
     Dosage: 1 TABLET 2 PER DAY BY MOUTH
     Dates: start: 20100919

REACTIONS (23)
  - INFLUENZA LIKE ILLNESS [None]
  - URINARY INCONTINENCE [None]
  - RASH MACULAR [None]
  - FLUID RETENTION [None]
  - CONFUSIONAL STATE [None]
  - ARTHRALGIA [None]
  - PYREXIA [None]
  - LETHARGY [None]
  - DECREASED APPETITE [None]
  - CONTUSION [None]
  - BLISTER [None]
  - POLLAKIURIA [None]
  - MOOD SWINGS [None]
  - HYPOPHAGIA [None]
  - OROPHARYNGEAL PAIN [None]
  - ASTHENIA [None]
  - FATIGUE [None]
  - DIARRHOEA [None]
  - SKIN EXFOLIATION [None]
  - SECRETION DISCHARGE [None]
  - DEPRESSION [None]
  - DISCOMFORT [None]
  - DYSPHAGIA [None]
